FAERS Safety Report 4396110-8 (Version None)
Quarter: 2004Q2

REPORT INFORMATION
  Report Type: 
  Country: None (occurrence: None)
  Receive Date: 20040621
  Receipt Date: 20031121
  Transmission Date: 20050107
  Serious: Yes (Death)
  Sender: FDA-Public Use
  Company Number: USA-2003-0011035

PATIENT
  Age: 24 Year
  Sex: Female
  Weight: 85.7 kg

DRUGS (6)
  1. OXYCONTIN TABLETS (OXYCODONE HYDRCHLORIDE) [Suspect]
     Dosage: 40 MG, ORAL
     Route: 048
  2. OXYCODONE HCL [Suspect]
     Dosage: 5 MG
  3. ALPRAZOLAM [Suspect]
     Dosage: 0.25 MG, ORAL
     Route: 048
  4. DIPHENHYDRAMINE HCL [Suspect]
  5. PROMETHAZINE [Suspect]
  6. NICOTINE [Suspect]

REACTIONS (1)
  - ACCIDENTAL OVERDOSE [None]
